FAERS Safety Report 11032273 (Version 1)
Quarter: 2015Q2

REPORT INFORMATION
  Report Type: Spontaneous
  Country: US (occurrence: None)
  Receive Date: 20150414
  Receipt Date: 20150414
  Transmission Date: 20150821
  Serious: Yes (Hospitalization)
  Sender: FDA-Public Use
  Company Number: SP09278

PATIENT
  Age: 84 Year
  Sex: Male
  Weight: 81.65 kg

DRUGS (1)
  1. XIFAXAN [Suspect]
     Active Substance: RIFAXIMIN
     Indication: HEPATIC CIRRHOSIS
     Route: 048
     Dates: start: 201501

REACTIONS (3)
  - Fall [None]
  - Hip fracture [None]
  - Upper limb fracture [None]

NARRATIVE: CASE EVENT DATE: 20150322
